FAERS Safety Report 15576043 (Version 1)
Quarter: 2018Q4

REPORT INFORMATION
  Report Type: Spontaneous
  Country: US (occurrence: US)
  Receive Date: 20181101
  Receipt Date: 20181101
  Transmission Date: 20190205
  Serious: No
  Sender: FDA-Public Use
  Company Number: US-BRECKENRIDGE PHARMACEUTICAL, INC.-2058302

PATIENT
  Age: 34 Year
  Sex: Female

DRUGS (1)
  1. RABEPRAZOLE SODIUM. [Suspect]
     Active Substance: RABEPRAZOLE SODIUM

REACTIONS (3)
  - Malaise [Unknown]
  - Dysphonia [Unknown]
  - Vomiting [Unknown]
